FAERS Safety Report 6451725 (Version 2)
Quarter: 2025Q3

REPORT INFORMATION
  Report Type: Spontaneous
  Country: US (occurrence: US)
  Receive Date: 20071025
  Receipt Date: 20250814
  Transmission Date: 20251020
  Serious: Yes (Death, Other)
  Sender: MERCK SHARP & DOHME LLC
  Company Number: US-MERCK-0710USA04182

PATIENT
  Age: 55 Year
  Sex: Male

DRUGS (5)
  1. CASPOFUNGIN ACETATE [Suspect]
     Active Substance: CASPOFUNGIN ACETATE
     Indication: Bronchopulmonary aspergillosis
     Route: 042
  2. CASPOFUNGIN ACETATE [Suspect]
     Active Substance: CASPOFUNGIN ACETATE
     Indication: Bronchopulmonary aspergillosis
     Dosage: DOSE DESCRIPTION : 50 MG, QD?DAILY DOSE : 50 MILLIGRAM
     Route: 042
  3. VORICONAZOLE [Suspect]
     Active Substance: VORICONAZOLE
     Indication: Bronchopulmonary aspergillosis
     Dosage: DOSE DESCRIPTION : 400 MG, Q12H?DAILY DOSE : 800 MILLIGRAM
     Route: 042
  4. DALFOPRISTIN\QUINUPRISTIN [Concomitant]
     Active Substance: DALFOPRISTIN\QUINUPRISTIN
     Indication: Enterococcal infection
  5. MEROPENEM [Concomitant]
     Active Substance: MEROPENEM
     Indication: Pneumonia klebsiella

REACTIONS (2)
  - Death [Fatal]
  - Drug ineffective [Not Recovered/Not Resolved]
